FAERS Safety Report 6445880-3 (Version None)
Quarter: 2009Q4

REPORT INFORMATION
  Report Type: 
  Country: None (occurrence: None)
  Receive Date: 20091119
  Receipt Date: 20091117
  Transmission Date: 20100525
  Serious: Yes (Other)
  Sender: FDA-Public Use
  Company Number: US-ALLERGAN-0915025US

PATIENT
  Age: 91 Year
  Sex: Female

DRUGS (3)
  1. COMBIGAN [Suspect]
     Indication: GLAUCOMA
     Dosage: UNK
     Route: 047
     Dates: start: 20091002, end: 20091015
  2. COMBIGAN [Suspect]
     Dosage: UNK
     Route: 047
  3. COMBIGAN [Suspect]
     Dosage: UNK
     Route: 047
     Dates: start: 20091015

REACTIONS (1)
  - INTRAOCULAR PRESSURE INCREASED [None]
